FAERS Safety Report 13429868 (Version 10)
Quarter: 2018Q3

REPORT INFORMATION
  Report Type: Report from Study
  Country: None (occurrence: US)
  Receive Date: 20170412
  Receipt Date: 20180914
  Transmission Date: 20181010
  Serious: Yes (Life-Threatening, Hospitalization, Other)
  Sender: FDA-Public Use
  Company Number: US-ABBVIE-17K-163-1876647-00

PATIENT
  Sex: Male
  Weight: 74.91 kg

DRUGS (7)
  1. PROTONIX [Suspect]
     Active Substance: PANTOPRAZOLE SODIUM
     Indication: GASTROINTESTINAL ULCER
     Route: 065
  2. FLU SHOT [Suspect]
     Active Substance: INFLUENZA VIRUS VACCINE
     Indication: PRODUCT USED FOR UNKNOWN INDICATION
     Route: 065
  3. HUMIRA [Suspect]
     Active Substance: ADALIMUMAB
     Indication: RHEUMATOID ARTHRITIS
     Route: 058
     Dates: start: 20050623
  4. FOLIC ACID. [Concomitant]
     Active Substance: FOLIC ACID
     Indication: VITAMIN SUPPLEMENTATION
  5. METHOTREXATE SODIUM. [Suspect]
     Active Substance: METHOTREXATE SODIUM
     Indication: RHEUMATOID ARTHRITIS
     Route: 065
  6. METHOTREXATE SODIUM. [Suspect]
     Active Substance: METHOTREXATE SODIUM
     Indication: SWELLING
  7. METHOTREXATE SODIUM. [Suspect]
     Active Substance: METHOTREXATE SODIUM
     Indication: MUSCULOSKELETAL STIFFNESS

REACTIONS (39)
  - Mass [Unknown]
  - Oral herpes [Unknown]
  - Pneumonia influenzal [Unknown]
  - Cataract [Not Recovered/Not Resolved]
  - Joint lock [Unknown]
  - Prostatomegaly [Not Recovered/Not Resolved]
  - Malaise [Unknown]
  - Arthralgia [Unknown]
  - Diarrhoea [Unknown]
  - Eye operation [Unknown]
  - Blood folate decreased [Unknown]
  - Nodule [Unknown]
  - Pain in extremity [Unknown]
  - Influenza [Unknown]
  - Asthenia [Recovered/Resolved]
  - Faeces discoloured [Recovered/Resolved]
  - Prostatic specific antigen increased [Recovered/Resolved]
  - Fatigue [Unknown]
  - Thyroid function test abnormal [Recovering/Resolving]
  - Haemoglobin decreased [Unknown]
  - Nocturia [Recovered/Resolved]
  - Injection site bruising [Unknown]
  - Peripheral swelling [Unknown]
  - Peripheral swelling [Recovered/Resolved]
  - Nasal cavity cancer [Recovered/Resolved]
  - Joint swelling [Unknown]
  - Prostatic disorder [Unknown]
  - Melanocytic naevus [Unknown]
  - Gastrooesophageal reflux disease [Unknown]
  - Tooth extraction [Unknown]
  - Injection site bruising [Recovered/Resolved]
  - Pain [Not Recovered/Not Resolved]
  - Hernia [Unknown]
  - Stress [Recovered/Resolved]
  - Skin lesion [Unknown]
  - Vomiting [Unknown]
  - Gastric ulcer haemorrhage [Recovered/Resolved]
  - Musculoskeletal pain [Unknown]
  - Musculoskeletal discomfort [Unknown]

NARRATIVE: CASE EVENT DATE: 2005
